FAERS Safety Report 11357373 (Version 1)
Quarter: 2015Q3

REPORT INFORMATION
  Report Type: Spontaneous
  Country: US (occurrence: US)
  Receive Date: 20150803
  Receipt Date: 20150803
  Transmission Date: 20151125
  Serious: No
  Sender: FDA-Public Use
  Company Number: US-ELI_LILLY_AND_COMPANY-US201402009117

PATIENT
  Age: 35 Year
  Sex: Female

DRUGS (1)
  1. OLANZAPINE. [Suspect]
     Active Substance: OLANZAPINE
     Indication: EATING DISORDER
     Dosage: 2.5 MG, QD
     Route: 065
     Dates: start: 201311

REACTIONS (2)
  - Off label use [Not Recovered/Not Resolved]
  - Food craving [Not Recovered/Not Resolved]

NARRATIVE: CASE EVENT DATE: 201311
